FAERS Safety Report 4519150-4 (Version None)
Quarter: 2004Q4

REPORT INFORMATION
  Report Type: 
  Country: None (occurrence: None)
  Receive Date: 20041201
  Receipt Date: 20041116
  Transmission Date: 20050328
  Serious: Yes (Disabling)
  Sender: FDA-Public Use
  Company Number: 2004AP02127

PATIENT
  Sex: Female

DRUGS (2)
  1. MARCAINE [Suspect]
     Indication: DENTAL TREATMENT
  2. MARCAINE [Suspect]
     Indication: DENTAL TREATMENT

REACTIONS (3)
  - CARDIAC DISORDER [None]
  - DIPLOPIA [None]
  - EYELID PTOSIS [None]
